FAERS Safety Report 25411238 (Version 2)
Quarter: 2025Q3

REPORT INFORMATION
  Report Type: Spontaneous
  Country: JP (occurrence: JP)
  Receive Date: 20250609
  Receipt Date: 20250811
  Transmission Date: 20251020
  Serious: Yes (Other)
  Sender: AMGEN
  Company Number: JP-TAKEDA-2025TJP005509

PATIENT
  Age: 75 Year
  Sex: Male

DRUGS (1)
  1. VECTIBIX [Suspect]
     Active Substance: PANITUMUMAB
     Indication: Product used for unknown indication
     Route: 041
     Dates: start: 20250516

REACTIONS (1)
  - Pancreatitis [Not Recovered/Not Resolved]
